FAERS Safety Report 8885630 (Version 2)
Quarter: 2012Q4

REPORT INFORMATION
  Report Type: 
  Country: CA (occurrence: CA)
  Receive Date: 20121105
  Receipt Date: 20121204
  Transmission Date: 20130627
  Serious: Yes (Hospitalization)
  Sender: FDA-Public Use
  Company Number: PHHY2010CA53446

PATIENT
  Age: 61 Year
  Sex: Female

DRUGS (13)
  1. ACLASTA [Suspect]
     Indication: OSTEOPOROSIS
     Dosage: UNK UKN, UNK
     Route: 042
     Dates: start: 20100722
  2. ACLASTA [Suspect]
     Dosage: UNK UKN, UNK
     Route: 042
     Dates: start: 20110630
  3. ACLASTA [Suspect]
     Dosage: UNK UKN, UNK
     Route: 042
     Dates: start: 20120614
  4. NORVASC [Concomitant]
  5. METFORMIN [Concomitant]
     Dosage: 500 mg, BID
  6. LIPITOR [Concomitant]
     Dosage: 20 mg, QD
  7. COVERSYL [Concomitant]
     Dosage: 8 mg, QD
  8. AVALIDE [Concomitant]
  9. ASA [Concomitant]
  10. ACTUSS [Concomitant]
  11. DIAMICRON [Concomitant]
     Dosage: 30 UKN, QD
  12. ACTOS [Concomitant]
     Dosage: 45 mg, QD
  13. CHLORTHALIDONE [Concomitant]
     Dosage: 50 mg,1/2 tablet per day

REACTIONS (8)
  - Fall [Unknown]
  - Rib fracture [Recovering/Resolving]
  - Spinal fracture [Recovering/Resolving]
  - Body height decreased [Recovering/Resolving]
  - Pyrexia [Recovered/Resolved]
  - Arthralgia [Recovered/Resolved]
  - Bone pain [Recovered/Resolved]
  - Insomnia [Recovered/Resolved]
